FAERS Safety Report 24971491 (Version 6)
Quarter: 2025Q1

REPORT INFORMATION
  Report Type: Spontaneous
  Country: US (occurrence: US)
  Receive Date: 20250214
  Receipt Date: 20250313
  Transmission Date: 20250409
  Serious: No
  Sender: PFIZER
  Company Number: US-PFIZER INC-202500029053

PATIENT
  Age: 4 Year
  Sex: Male

DRUGS (2)
  1. GENOTROPIN [Suspect]
     Active Substance: SOMATROPIN
     Dosage: 0.5 MG, DAILY
  2. GENOTROPIN [Suspect]
     Active Substance: SOMATROPIN

REACTIONS (4)
  - Device use issue [Unknown]
  - Device power source issue [Unknown]
  - Device defective [Unknown]
  - Device information output issue [Unknown]
